FAERS Safety Report 8919368 (Version 1)
Quarter: 2012Q4

REPORT INFORMATION
  Report Type: 
  Country: US (occurrence: US)
  Receive Date: 20121121
  Receipt Date: 20121121
  Transmission Date: 20130627
  Serious: Yes (Hospitalization)
  Sender: FDA-Public Use
  Company Number: US-BAYER-2012-119509

PATIENT
  Age: 26 Year
  Sex: Female
  Weight: 77.1 kg

DRUGS (3)
  1. YASMIN [Suspect]
  2. GLUCOPHAGE [Concomitant]
  3. CLARITIN [Concomitant]

REACTIONS (1)
  - Deep vein thrombosis [Recovered/Resolved]
